FAERS Safety Report 7386123-6 (Version None)
Quarter: 2011Q1

REPORT INFORMATION
  Report Type: 
  Country: None (occurrence: None)
  Receive Date: 20110329
  Receipt Date: 20110329
  Transmission Date: 20110831
  Serious: Yes (Hospitalization)
  Sender: FDA-Public Use
  Company Number: None

PATIENT
  Age: 83 Year
  Sex: Male
  Weight: 96.3 kg

DRUGS (11)
  1. ASPIRIN [Concomitant]
  2. SIMVASTATIN [Concomitant]
  3. METOPROLOL TARTRATE [Concomitant]
  4. OMEPRAZOLE [Concomitant]
  5. DIAZEPAM [Concomitant]
  6. ALLOPURINOL [Concomitant]
  7. ISOSORBIDE MONONITRATE [Concomitant]
  8. TRAZODONE [Concomitant]
  9. RITUXAN [Suspect]
     Indication: SPLENIC MARGINAL ZONE LYMPHOMA
     Dosage: 100MG/120ML ONCE IV
     Route: 042
     Dates: start: 20110210
  10. LEVOTHYROXINE [Concomitant]
  11. TERAZOSIN [Concomitant]

REACTIONS (7)
  - ELECTROCARDIOGRAM ABNORMAL [None]
  - BACK PAIN [None]
  - INFUSION RELATED REACTION [None]
  - BUNDLE BRANCH BLOCK RIGHT [None]
  - CHEST PAIN [None]
  - DYSPNOEA [None]
  - BODY TEMPERATURE INCREASED [None]
